FAERS Safety Report 6247613-2 (Version None)
Quarter: 2009Q2

REPORT INFORMATION
  Report Type: 
  Country: None (occurrence: None)
  Receive Date: 20090626
  Receipt Date: 20090619
  Transmission Date: 20091009
  Serious: Yes (Hospitalization, Other)
  Sender: FDA-Public Use
  Company Number: ES-AVENTIS-200911689EU

PATIENT
  Age: 56 Year
  Sex: Male

DRUGS (6)
  1. SEGURIL                            /00032601/ [Suspect]
     Dosage: DOSE: 40 + 20
     Route: 048
     Dates: start: 20080222, end: 20080307
  2. ALDACTONE [Suspect]
     Route: 048
     Dates: start: 20080222, end: 20080307
  3. RISPERDAL [Suspect]
     Route: 048
     Dates: start: 20080101, end: 20080307
  4. GOBEMICINA [Suspect]
     Indication: ABDOMINAL INFECTION
     Dosage: DOSE: UNK (4G)
     Route: 042
     Dates: start: 20090428, end: 20090515
  5. ACETAMINOPHEN [Suspect]
     Dosage: DOSE: UNK (3G)
     Route: 042
     Dates: start: 20090428
  6. CIPRALEX [Concomitant]
     Dosage: DOSE: UNK
     Route: 048
     Dates: end: 20080307

REACTIONS (2)
  - DRUG INTERACTION [None]
  - HEPATIC ENCEPHALOPATHY [None]
